FAERS Safety Report 7246551-6 (Version None)
Quarter: 2011Q1

REPORT INFORMATION
  Report Type: 
  Country: None (occurrence: None)
  Receive Date: 20110127
  Receipt Date: 20110124
  Transmission Date: 20110831
  Serious: Yes (Death)
  Sender: FDA-Public Use
  Company Number: BE-BIOGENIDEC-2011BI002612

PATIENT
  Sex: Female

DRUGS (4)
  1. LORMETAZEPAM [Concomitant]
     Route: 048
  2. SEROQUEL [Concomitant]
     Route: 048
  3. D-CURE [Concomitant]
     Route: 048
  4. TYSABRI [Suspect]
     Indication: MULTIPLE SCLEROSIS
     Route: 042
     Dates: start: 20100414, end: 20101123

REACTIONS (1)
  - COMPLETED SUICIDE [None]
